FAERS Safety Report 12968586 (Version 2)
Quarter: 2017Q2

REPORT INFORMATION
  Report Type: Spontaneous
  Country: DE (occurrence: DE)
  Receive Date: 20161123
  Receipt Date: 20170420
  Transmission Date: 20170830
  Serious: Yes (Life-Threatening, Hospitalization)
  Sender: FDA-Public Use
  Company Number: GXKR2016DE005268

PATIENT

DRUGS (6)
  1. ASPIRIN. [Concomitant]
     Active Substance: ASPIRIN
     Indication: CORONARY ARTERY DISEASE
     Dosage: DAILY DOSE: 100 MG MILLGRAM(S) EVERY DAYS
     Route: 048
     Dates: start: 20160302
  2. FUMADERM [Suspect]
     Active Substance: CALCIUM MONOETHYLFUMARATE\DIMETHYL FUMARATE\MAGNESIUM MONOETHYLFUMARATE\ZINC MONOETHYLFUMARATE
     Indication: PSORIASIS
     Route: 065
     Dates: start: 2015, end: 20160709
  3. RAMIPRIL. [Concomitant]
     Active Substance: RAMIPRIL
     Indication: CORONARY ARTERY DISEASE
     Dosage: DAILY DOSE: 2.5 MG MILLGRAM(S) EVERY DAYS
     Route: 048
     Dates: start: 20160302
  4. METOPROLOL. [Concomitant]
     Active Substance: METOPROLOL
     Indication: CORONARY ARTERY DISEASE
     Dosage: DAILY DOSE: 47.5 MG MILLGRAM(S) EVERY DAYS
     Route: 048
     Dates: start: 20160302
  5. ATORVASTATIN [Suspect]
     Active Substance: ATORVASTATIN
     Indication: CORONARY ARTERY DISEASE
     Dosage: 80 MG, ONCE DAILY
     Route: 048
     Dates: start: 20160302, end: 20160824
  6. BRILIQUE [Concomitant]
     Active Substance: TICAGRELOR
     Indication: CORONARY ARTERY DISEASE
     Dosage: DAILY DOSE: 180 MG MILLGRAM(S) EVERY DAYS
     Route: 048
     Dates: start: 20160302

REACTIONS (3)
  - Anaemia [Recovered/Resolved]
  - Transaminases increased [Recovered/Resolved]
  - General physical health deterioration [Recovered/Resolved]

NARRATIVE: CASE EVENT DATE: 201606
